FAERS Safety Report 5661038-X (Version None)
Quarter: 2008Q1

REPORT INFORMATION
  Report Type: 
  Country: None (occurrence: None)
  Receive Date: 20080311
  Receipt Date: 20080107
  Transmission Date: 20080703
  Serious: Yes (Death)
  Sender: FDA-Public Use
  Company Number: US-BOEHRINGER INGELHEIM GMBH, GERMANY-2007-BP-00096BP

PATIENT
  Sex: Male
  Weight: 82 kg

DRUGS (13)
  1. MIRAPEX [Suspect]
     Indication: PARKINSON'S DISEASE
     Dates: start: 19970921
  2. SINEMET CR [Concomitant]
     Indication: PARKINSON'S DISEASE
     Dates: start: 19970101
  3. SINEMET [Concomitant]
     Indication: PARKINSON'S DISEASE
     Dates: start: 19960426
  4. ARTANE [Concomitant]
     Indication: PARKINSON'S DISEASE
  5. AMOXICILLIN [Concomitant]
  6. TASMAR [Concomitant]
     Indication: PARKINSON'S DISEASE
     Dates: start: 19980714
  7. COMTAN [Concomitant]
     Indication: PARKINSON'S DISEASE
     Dates: start: 20000411, end: 20000711
  8. CARB/LEVO [Concomitant]
  9. STALEVO [Concomitant]
     Indication: PARKINSON'S DISEASE
     Dates: start: 20040108, end: 20040326
  10. REQUIP [Concomitant]
     Indication: PARKINSON'S DISEASE
     Dates: start: 19970101
  11. ATIVAN [Concomitant]
     Indication: ANXIETY
     Dates: start: 20060601
  12. KLONOPIN [Concomitant]
     Indication: SLEEP DISORDER
     Dates: start: 20060601
  13. KLONOPIN [Concomitant]
     Indication: ANXIETY

REACTIONS (11)
  - ADJUSTMENT DISORDER [None]
  - BINGE EATING [None]
  - COMPLETED SUICIDE [None]
  - DEPRESSED MOOD [None]
  - FEELING GUILTY [None]
  - HALLUCINATION, AUDITORY [None]
  - HALLUCINATION, VISUAL [None]
  - HYPERPHAGIA [None]
  - MULTIPLE INJURIES [None]
  - OBSESSIVE-COMPULSIVE DISORDER [None]
  - PATHOLOGICAL GAMBLING [None]
